FAERS Safety Report 8230050-9 (Version None)
Quarter: 2012Q1

REPORT INFORMATION
  Report Type: 
  Country: None (occurrence: None)
  Receive Date: 20120307
  Receipt Date: 20100601
  Transmission Date: 20120608
  Serious: Yes (Other)
  Sender: FDA-Public Use
  Company Number: PHHY2010US36017

PATIENT
  Age: 81 Year
  Sex: Female

DRUGS (11)
  1. AFINITOR [Suspect]
     Indication: NEOPLASM MALIGNANT
     Dosage: 10 MG, ORAL
     Route: 048
     Dates: start: 20100515, end: 20100520
  2. SUTENT [Suspect]
     Dosage: 25 MG; 12.5 MG
  3. ZINC (ZINC) [Concomitant]
  4. PHOSLO [Concomitant]
  5. SENSIPAR [Suspect]
     Dosage: 30 MG
  6. BABY ASPIRIN (ACETYLASLICYLIC ACID) [Concomitant]
  7. LISINOPRIL [Concomitant]
  8. DIATX (CYANOCOBALAMIN, FOLIC ACID, PYRIDOXINE) [Concomitant]
  9. SIMVASTATIN [Concomitant]
  10. VITAMIN D6 [Concomitant]
  11. METOPROLOL TARTRATE [Concomitant]

REACTIONS (3)
  - ABDOMINAL DISCOMFORT [None]
  - DIARRHOEA [None]
  - HAEMORRHAGE [None]
